FAERS Safety Report 7297358-5 (Version None)
Quarter: 2011Q1

REPORT INFORMATION
  Report Type: 
  Country: None (occurrence: None)
  Receive Date: 20110216
  Receipt Date: 20110211
  Transmission Date: 20110831
  Serious: Yes (Hospitalization)
  Sender: FDA-Public Use
  Company Number: US-B.I. PHARMACEUTICALS,INC./RIDGEFIELD-2011-BP-02668BP

PATIENT
  Age: 72 Year
  Sex: Female

DRUGS (2)
  1. GLIPIZIDE [Concomitant]
     Indication: DIABETES MELLITUS
  2. PRADAXA [Suspect]
     Indication: ATRIAL FIBRILLATION
     Dosage: 300 MG
     Route: 048
     Dates: start: 20110101, end: 20110202

REACTIONS (3)
  - RECTAL HAEMORRHAGE [None]
  - DIZZINESS [None]
  - DIARRHOEA [None]
